FAERS Safety Report 13113258 (Version 5)
Quarter: 2017Q2

REPORT INFORMATION
  Report Type: Spontaneous
  Country: JP (occurrence: JP)
  Receive Date: 20170113
  Receipt Date: 20170424
  Transmission Date: 20170830
  Serious: Yes (Death, Hospitalization, Other)
  Sender: FDA-Public Use
  Company Number: JP-GLAXOSMITHKLINE-JP2017JPN002776

PATIENT
  Age: 9 Decade
  Sex: Male

DRUGS (1)
  1. VALTREX [Suspect]
     Active Substance: VALACYCLOVIR HYDROCHLORIDE
     Dosage: UNK
     Route: 048

REACTIONS (4)
  - Fanconi syndrome acquired [Fatal]
  - Renal tubular disorder [Fatal]
  - Acute kidney injury [Fatal]
  - Pneumonia aspiration [Fatal]
